FAERS Safety Report 6021210-6 (Version None)
Quarter: 2008Q4

REPORT INFORMATION
  Report Type: 
  Country: None (occurrence: None)
  Receive Date: 20081222
  Receipt Date: 20081205
  Transmission Date: 20090506
  Serious: Yes (Other)
  Sender: FDA-Public Use
  Company Number: DSU-2008-02175

PATIENT
  Age: 66 Year
  Sex: Female

DRUGS (1)
  1. OLMESARTAN MEDOXOMIL [Suspect]
     Indication: DRUG USE FOR UNKNOWN INDICATION
     Dosage: 20 MG (20 MQ,QD), PER ORAL
     Route: 048
     Dates: start: 20080825, end: 20081119

REACTIONS (2)
  - COUGH [None]
  - TRACHEAL DISORDER [None]
